FAERS Safety Report 25742513 (Version 1)
Quarter: 2025Q3

REPORT INFORMATION
  Report Type: Spontaneous
  Country: US (occurrence: US)
  Receive Date: 20250829
  Receipt Date: 20250829
  Transmission Date: 20251020
  Serious: Yes (Death, Hospitalization)
  Sender: BEIGENE
  Company Number: US-BEIGENE-BGN-2025-014757

PATIENT
  Age: 65 Year

DRUGS (5)
  1. BRUKINSA [Suspect]
     Active Substance: ZANUBRUTINIB
     Indication: Waldenstrom^s macroglobulinaemia
  2. BRUKINSA [Suspect]
     Active Substance: ZANUBRUTINIB
  3. BENDAMUSTINE [Suspect]
     Active Substance: BENDAMUSTINE
     Indication: Chronic myelomonocytic leukaemia
  4. RITUXIMAB [Suspect]
     Active Substance: RITUXIMAB
     Indication: Chronic myelomonocytic leukaemia
  5. GRANULOCYTE COLONY-STIMULATING FACTOR NOS [Suspect]
     Active Substance: GRANULOCYTE COLONY-STIMULATING FACTOR NOS
     Indication: Chronic myelomonocytic leukaemia

REACTIONS (6)
  - Subdural haematoma [Fatal]
  - Hyperleukocytosis [Fatal]
  - Cytopenia [Fatal]
  - Disseminated intravascular coagulation [Fatal]
  - Tumour lysis syndrome [Fatal]
  - Multiple organ dysfunction syndrome [Fatal]
